FAERS Safety Report 5004177-9 (Version None)
Quarter: 2006Q2

REPORT INFORMATION
  Report Type: 
  Country: None (occurrence: None)
  Receive Date: 20060517
  Receipt Date: 20060510
  Transmission Date: 20061013
  Serious: Yes (Other)
  Sender: FDA-Public Use
  Company Number: GB-JNJFOC-20060501755

PATIENT
  Age: 3 Decade
  Sex: Male

DRUGS (3)
  1. RISPERDAL [Suspect]
     Route: 048
  2. RISPERDAL [Suspect]
     Indication: DRUG USE FOR UNKNOWN INDICATION
     Route: 048
  3. CYPROTHERONE ACETATE [Concomitant]
     Indication: ANTIPROLACTIN THERAPY

REACTIONS (2)
  - BLOOD PROLACTIN INCREASED [None]
  - SEXUAL DYSFUNCTION [None]
